FAERS Safety Report 23432231 (Version 1)
Quarter: 2024Q1

REPORT INFORMATION
  Report Type: Spontaneous
  Country: US (occurrence: None)
  Receive Date: 20240122
  Receipt Date: 20240122
  Transmission Date: 20240409
  Serious: Yes (Other)
  Sender: FDA-Public Use
  Company Number: None

PATIENT
  Sex: Female

DRUGS (2)
  1. TOUJEO [Suspect]
     Active Substance: INSULIN GLARGINE
     Indication: Diabetes mellitus
     Dates: start: 20231201, end: 20240117
  2. LANTUS [Suspect]
     Active Substance: INSULIN GLARGINE

REACTIONS (13)
  - Blood glucose increased [None]
  - Paraesthesia [None]
  - Hypoaesthesia [None]
  - Arthralgia [None]
  - Abdominal pain [None]
  - Groin pain [None]
  - Pain in extremity [None]
  - Loss of personal independence in daily activities [None]
  - Cardiac flutter [None]
  - Chest discomfort [None]
  - Hypoaesthesia oral [None]
  - Hypoaesthesia [None]
  - Therapy cessation [None]
